FAERS Safety Report 4402877-2 (Version None)
Quarter: 2004Q3

REPORT INFORMATION
  Report Type: 
  Country: None (occurrence: None)
  Receive Date: 20040720
  Receipt Date: 20040720
  Transmission Date: 20050211
  Serious: No
  Sender: FDA-Public Use
  Company Number: None

PATIENT
  Age: 49 Year
  Sex: Female

DRUGS (1)
  1. FLUOXETINE [Suspect]
     Dosage: 20 MG TWO BID

REACTIONS (3)
  - ABDOMINAL PAIN UPPER [None]
  - MUSCLE CRAMP [None]
  - PHARMACEUTICAL PRODUCT COMPLAINT [None]
